FAERS Safety Report 10068761 (Version 1)
Quarter: 2014Q2

REPORT INFORMATION
  Report Type: Report from Study
  Country: US (occurrence: US)
  Receive Date: 20140409
  Receipt Date: 20140409
  Transmission Date: 20141212
  Serious: Yes (Other)
  Sender: FDA-Public Use
  Company Number: PHEH2014US006756

PATIENT
  Sex: Female

DRUGS (1)
  1. FANAPT [Suspect]
     Dosage: 2 MG, UNK

REACTIONS (6)
  - Nervous system disorder [Unknown]
  - Depression [Unknown]
  - Head discomfort [Unknown]
  - Thinking abnormal [Unknown]
  - Dizziness [Unknown]
  - Confusional state [Unknown]
